FAERS Safety Report 7027313-1 (Version None)
Quarter: 2010Q3

REPORT INFORMATION
  Report Type: 
  Country: None (occurrence: None)
  Receive Date: 20100930
  Receipt Date: 20100927
  Transmission Date: 20110219
  Serious: Yes (Death)
  Sender: FDA-Public Use
  Company Number: 2010SP051427

PATIENT

DRUGS (2)
  1. NOXAFIL [Suspect]
     Indication: PROPHYLAXIS
     Dosage: 200 MG;TID
  2. VFEND [Concomitant]

REACTIONS (2)
  - SYSTEMIC MYCOSIS [None]
  - ZYGOMYCOSIS [None]
